FAERS Safety Report 5130528-0 (Version None)
Quarter: 2006Q4

REPORT INFORMATION
  Report Type: 
  Country: None (occurrence: None)
  Receive Date: 20061018
  Receipt Date: 20061018
  Transmission Date: 20070319
  Serious: Yes (Other)
  Sender: FDA-Public Use
  Company Number: None

PATIENT
  Age: 25 Year
  Sex: Male
  Weight: 72.5755 kg

DRUGS (1)
  1. CREST PRO-HEALTH  COOL WINTERGREEN CREST [Suspect]
     Indication: DENTAL DISORDER PROPHYLAXIS
     Dosage: 4 TEASPOONS TWICE A DAY DENTAL
     Route: 004
     Dates: start: 20060915, end: 20061015

REACTIONS (1)
  - TOOTH DISCOLOURATION [None]
